FAERS Safety Report 8402280-4 (Version None)
Quarter: 2012Q2

REPORT INFORMATION
  Report Type: 
  Country: None (occurrence: None)
  Receive Date: 20120601
  Receipt Date: 20081031
  Transmission Date: 20120825
  Serious: Yes (Hospitalization, Other)
  Sender: FDA-Public Use
  Company Number: JP-BRISTOL-MYERS SQUIBB COMPANY-14381081

PATIENT
  Age: 50 Year
  Sex: Female

DRUGS (11)
  1. ABILIFY [Suspect]
     Indication: PSYCHOTIC DISORDER
     Dosage: STRENGTH:6MG. 23AUG06-17OCT06:12MG QD 56DAYS 18OCT06-07OCT08:24MG,QD 721DAYS
     Route: 048
     Dates: start: 20060823, end: 20081007
  2. NORVASC [Concomitant]
     Dosage: FORMULATION: TAB
     Dates: end: 20081007
  3. ROHYPNOL [Concomitant]
     Dosage: FORMULATION: TAB
     Dates: end: 20081007
  4. TRANDOLAPRIL [Concomitant]
     Dosage: FORMULATION: TAB
     Dates: end: 20081007
  5. AMOBAN [Concomitant]
     Dosage: FORMULATION: TAB
     Dates: end: 20081007
  6. RISPERDAL [Suspect]
     Dosage: 2006-22AUG06:8MG QD  23AUG06-18NOV06:4MG QD 88DAYS 19NOV06-07OCT08:6MG QD 689DAYS
     Route: 048
     Dates: start: 20060101, end: 20081007
  7. AKINETON [Concomitant]
     Dates: end: 20081007
  8. NEULEPTIL [Concomitant]
     Dates: end: 20081007
  9. MEILAX [Concomitant]
     Dosage: FORMULATION: TAB
     Dates: end: 20081007
  10. DEPAKENE [Concomitant]
     Dosage: DEPAKENE-R FORMULATION: TAB EXTENDED RELEASE,ER
     Dates: end: 20081007
  11. LITHIUM CARBONATE [Concomitant]
     Dosage: FORMULATION: TAB
     Dates: end: 20081007

REACTIONS (2)
  - NEUROLEPTIC MALIGNANT SYNDROME [None]
  - CHOLECYSTITIS [None]
